FAERS Safety Report 9846582 (Version 2)
Quarter: 2014Q1

REPORT INFORMATION
  Report Type: Spontaneous
  Country: US (occurrence: US)
  Receive Date: 20140127
  Receipt Date: 20140227
  Transmission Date: 20141002
  Serious: Yes (Hospitalization)
  Sender: FDA-Public Use
  Company Number: US-GLAXOSMITHKLINE-A1057482A

PATIENT
  Age: 34 Year
  Sex: Female

DRUGS (16)
  1. ADVAIR HFA [Suspect]
     Indication: ASTHMA
     Dosage: 1PUFF TWICE PER DAY
     Route: 055
     Dates: start: 2012
  2. VENTOLIN HFA [Suspect]
     Indication: ASTHMA
     Dosage: 2PUFF AS REQUIRED
     Route: 055
  3. LEVEMIR [Concomitant]
  4. NOVOLOG [Concomitant]
  5. VITAMIN D3 [Concomitant]
  6. SINGULAIR [Concomitant]
  7. METFORMIN [Concomitant]
  8. ASPIRIN [Concomitant]
  9. ATORVASTATIN [Concomitant]
  10. COMPAZINE [Concomitant]
  11. STOOL SOFTENER [Concomitant]
  12. ZOLOFT [Concomitant]
  13. LEVOXYL [Concomitant]
  14. ZYRTEC [Concomitant]
  15. PRILOSEC [Concomitant]
  16. LISINOPRIL + HYDROCHLOROTHIAZIDE [Concomitant]

REACTIONS (4)
  - Intervertebral disc protrusion [Unknown]
  - Intervertebral disc protrusion [Unknown]
  - Dyspnoea [Not Recovered/Not Resolved]
  - Asthma [Not Recovered/Not Resolved]
